FAERS Safety Report 21412628 (Version 2)
Quarter: 2023Q2

REPORT INFORMATION
  Report Type: Spontaneous
  Country: US (occurrence: US)
  Receive Date: 20221005
  Receipt Date: 20230424
  Transmission Date: 20230721
  Serious: Yes (Other)
  Sender: FDA-Public Use
  Company Number: US-PFIZER INC-202201205148

PATIENT
  Age: 69 Year
  Sex: Male

DRUGS (1)
  1. XELJANZ XR [Suspect]
     Active Substance: TOFACITINIB CITRATE
     Indication: Rheumatoid arthritis
     Dosage: UNK
     Route: 048

REACTIONS (7)
  - Rheumatoid arthritis [Unknown]
  - Sensitivity to weather change [Unknown]
  - Mobility decreased [Unknown]
  - Fatigue [Unknown]
  - Stress [Unknown]
  - Muscular weakness [Unknown]
  - Condition aggravated [Recovering/Resolving]
